FAERS Safety Report 17252205 (Version 7)
Quarter: 2022Q2

REPORT INFORMATION
  Report Type: Spontaneous
  Country: US (occurrence: US)
  Receive Date: 20200109
  Receipt Date: 20220502
  Transmission Date: 20220721
  Serious: No
  Sender: FDA-Public Use
  Company Number: US-PFIZER INC-2020007178

PATIENT
  Age: 62 Year
  Sex: Female
  Weight: 129 kg

DRUGS (3)
  1. LYRICA [Suspect]
     Active Substance: PREGABALIN
     Indication: Cardiovascular disorder
     Dosage: 5 MG, 2X/DAY (# 180 ONE EIGHTY)
     Route: 048
  2. LYRICA [Suspect]
     Active Substance: PREGABALIN
     Indication: Pain
     Dosage: 25 MG
  3. LYRICA [Suspect]
     Active Substance: PREGABALIN
     Dosage: 75 MG, 2X/DAY ((TAKE 1 CAPSULE (S) TWICE A DAY BY ORAL ROUTE AS DIRECTED FOR 90 DAYS))
     Route: 048

REACTIONS (10)
  - Off label use [Unknown]
  - Product use in unapproved indication [Unknown]
  - Drug effective for unapproved indication [Unknown]
  - Intentional product use issue [Unknown]
  - Anxiety [Unknown]
  - Emotional disorder [Unknown]
  - Dyspnoea [Unknown]
  - Nervousness [Unknown]
  - Headache [Unknown]
  - Nausea [Unknown]
